FAERS Safety Report 16078773 (Version 4)
Quarter: 2019Q3

REPORT INFORMATION
  Report Type: Not Available
  Country: US (occurrence: US)
  Receive Date: 20190315
  Receipt Date: 20190710
  Transmission Date: 20191004
  Serious: No
  Sender: FDA-Public Use
  Company Number: US-NEUROCRINE BIOSCIENCES INC.-2019NBI00590

PATIENT
  Sex: Female

DRUGS (1)
  1. INGREZZA [Suspect]
     Active Substance: VALBENAZINE
     Indication: TARDIVE DYSKINESIA
     Route: 048
     Dates: start: 201710

REACTIONS (5)
  - Emotional disorder [Unknown]
  - Muscle strain [Unknown]
  - Irritability [Unknown]
  - Meniscus injury [Recovering/Resolving]
  - Malaise [Unknown]
